FAERS Safety Report 8850285 (Version 1)
Quarter: 2012Q4

REPORT INFORMATION
  Report Type: 
  Country: US (occurrence: US)
  Receive Date: 20121019
  Receipt Date: 20121019
  Transmission Date: 20130627
  Serious: No
  Sender: FDA-Public Use
  Company Number: US-PFIZER INC-2012257726

PATIENT
  Age: 57 Year
  Sex: Male
  Weight: 111 kg

DRUGS (2)
  1. VIAGRA [Suspect]
     Indication: ERECTILE DYSFUNCTION
     Dosage: UNK, as needed
     Route: 048
  2. PLAVIX [Concomitant]
     Indication: STENT PLACEMENT
     Dosage: 75 mg, daily

REACTIONS (2)
  - Nasal congestion [Unknown]
  - Suspected counterfeit product [Unknown]
